FAERS Safety Report 8203919-9 (Version None)
Quarter: 2012Q1

REPORT INFORMATION
  Report Type: 
  Country: None (occurrence: None)
  Receive Date: 20120313
  Receipt Date: 20120305
  Transmission Date: 20120608
  Serious: Yes (Hospitalization)
  Sender: FDA-Public Use
  Company Number: US-BAYER-2012-022460

PATIENT
  Age: 41 Year
  Sex: Female
  Weight: 88.073 kg

DRUGS (6)
  1. LANTUS [Concomitant]
     Indication: DIABETES MELLITUS
     Dosage: DAILY
     Route: 058
  2. HUMULIN R [Concomitant]
     Indication: DIABETES MELLITUS
     Dosage: SLIDING SCALE
     Route: 058
  3. YASMIN [Suspect]
     Indication: CONTRACEPTION
     Dosage: UNK
  4. HUMULIN N [INSULIN HUMAN] [Concomitant]
     Indication: DIABETES MELLITUS
     Dosage: UNK UNK, PRN
     Route: 058
  5. COENZYME Q10 [Concomitant]
     Dosage: DAILY DOSE 50 MG
     Route: 048
  6. MULTI-VITAMINS [Concomitant]
     Dosage: DAILY DOSE 1 NOT APPL.
     Route: 048

REACTIONS (1)
  - VENA CAVA THROMBOSIS [None]
